APPROVED DRUG PRODUCT: DOXYCYCLINE HYCLATE
Active Ingredient: DOXYCYCLINE HYCLATE
Strength: EQ 100MG BASE/VIAL
Dosage Form/Route: INJECTABLE;INJECTION
Application: A218888 | Product #001 | TE Code: AP
Applicant: ASPIRO PHARMA LTD
Approved: Aug 5, 2025 | RLD: No | RS: No | Type: RX